FAERS Safety Report 6552605-X (Version None)
Quarter: 2010Q1

REPORT INFORMATION
  Report Type: 
  Country: None (occurrence: None)
  Receive Date: 20100126
  Receipt Date: 20100114
  Transmission Date: 20100710
  Serious: Yes (Other)
  Sender: FDA-Public Use
  Company Number: B0628539A

PATIENT
  Weight: 2.5 kg

DRUGS (9)
  1. METRONIDAZOLE [Suspect]
  2. MEROPENEM [Suspect]
  3. ANALGESIC [Suspect]
  4. UNKNOWN DRUG [Suspect]
  5. VANCOMYCIN [Suspect]
  6. GENTAMICIN [Suspect]
  7. CLINDAMYCIN [Suspect]
  8. OXYTOCIN [Suspect]
  9. CEPHALOSPORIN [Suspect]

REACTIONS (2)
  - ATROPHY [None]
  - DRUG EXPOSURE DURING PREGNANCY [None]
